FAERS Safety Report 19692505 (Version 1)
Quarter: 2021Q3

REPORT INFORMATION
  Report Type: Spontaneous
  Country: DE (occurrence: DE)
  Receive Date: 20210812
  Receipt Date: 20210812
  Transmission Date: 20211014
  Serious: Yes (Other)
  Sender: FDA-Public Use
  Company Number: DE-TAKEDA-2021TUS048965

PATIENT
  Age: 61 Year
  Sex: Female

DRUGS (4)
  1. ARGATROBAN. [Concomitant]
     Active Substance: ARGATROBAN
     Route: 065
  2. HUMAN NORMAL IMMUNOGLOBULIN [Suspect]
     Active Substance: HUMAN IMMUNOGLOBULIN G
     Indication: IMMUNE THROMBOCYTOPENIA
     Dosage: 1 GRAM PER KILOGRAM
     Route: 042
  3. ALTEPLASE. [Concomitant]
     Active Substance: ALTEPLASE
     Route: 065
  4. ECULIZUMAB [Concomitant]
     Active Substance: ECULIZUMAB
     Indication: EMBOLISM
     Route: 065

REACTIONS (2)
  - Embolism [Recovering/Resolving]
  - Off label use [Unknown]
